FAERS Safety Report 9056840 (Version 4)
Quarter: 2013Q3

REPORT INFORMATION
  Report Type: Spontaneous
  Country: US (occurrence: US)
  Receive Date: 20130201
  Receipt Date: 20130828
  Transmission Date: 20140515
  Serious: Yes (Hospitalization, Other)
  Sender: FDA-Public Use
  Company Number: US-GLAXOSMITHKLINE-A1009932A

PATIENT
  Age: 63 Year
  Sex: Male

DRUGS (2)
  1. ADVAIR [Suspect]
     Indication: ASTHMA
     Route: 055
     Dates: start: 20101018
  2. CONCURRENT MEDICATIONS [Concomitant]

REACTIONS (3)
  - Asthma [Recovering/Resolving]
  - Drug administration error [Recovered/Resolved]
  - Cerebrovascular accident [Unknown]
